FAERS Safety Report 16250361 (Version 2)
Quarter: 2019Q2

REPORT INFORMATION
  Report Type: Spontaneous
  Country: US (occurrence: US)
  Receive Date: 20190429
  Receipt Date: 20190520
  Transmission Date: 20190711
  Serious: Yes (Other)
  Sender: FDA-Public Use
  Company Number: US-PFIZER INC-2019174855

PATIENT
  Age: 36 Year
  Sex: Male
  Weight: 72 kg

DRUGS (2)
  1. PRILOSEC [Concomitant]
     Active Substance: OMEPRAZOLE MAGNESIUM
     Indication: ABDOMINAL DISCOMFORT
     Dosage: 40 MG, DAILY
  2. LYRICA [Suspect]
     Active Substance: PREGABALIN
     Indication: PAIN
     Dosage: 100 MG, 2X/DAY
     Route: 048

REACTIONS (4)
  - Withdrawal syndrome [Unknown]
  - Drug effective for unapproved indication [Not Recovered/Not Resolved]
  - Off label use [Unknown]
  - Drug dependence [Unknown]
